FAERS Safety Report 8831773 (Version 2)
Quarter: 2013Q1

REPORT INFORMATION
  Report Type: Spontaneous
  Country: IE (occurrence: IE)
  Receive Date: 20121009
  Receipt Date: 20130111
  Transmission Date: 20140127
  Serious: No
  Sender: FDA-Public Use
  Company Number: PHFR2011IE04938

PATIENT
  Age: 28 Year
  Sex: Male

DRUGS (5)
  1. CLOZARIL [Suspect]
     Dosage: UNK UKN, UNK
     Route: 048
     Dates: start: 20030813
  2. CLOZARIL [Suspect]
     Dosage: 325 MG, UNK
     Route: 048
  3. ABILIFY [Concomitant]
     Dosage: 10 MG, UNK
     Route: 048
  4. FLUOXETIN [Concomitant]
     Dosage: 20 MG, UNK
     Route: 048
  5. KWELLS [Concomitant]
     Dosage: 1 DF, UNK
     Route: 048

REACTIONS (1)
  - Platelet count decreased [Recovered/Resolved]
